FAERS Safety Report 22159625 (Version 2)
Quarter: 2023Q4

REPORT INFORMATION
  Report Type: Spontaneous
  Country: US (occurrence: US)
  Receive Date: 20230331
  Receipt Date: 20231101
  Transmission Date: 20240110
  Serious: No
  Sender: FDA-Public Use
  Company Number: US-SA-SAC20230328001133

PATIENT
  Age: 19 Year
  Sex: Female

DRUGS (5)
  1. DUPIXENT [Suspect]
     Active Substance: DUPILUMAB
     Indication: Dermatitis atopic
     Dosage: 300 MG, QOW
     Route: 058
     Dates: start: 20220315
  2. AMOXICILLIN [Concomitant]
     Active Substance: AMOXICILLIN
     Dosage: UNK
  3. PREDNISONE [Concomitant]
     Active Substance: PREDNISONE
     Dosage: UNK
  4. XOLAIR [Concomitant]
     Active Substance: OMALIZUMAB
     Dosage: UNK
  5. HYDROCORTISONE [Concomitant]
     Active Substance: HYDROCORTISONE
     Dosage: UNK

REACTIONS (6)
  - Infection [Recovering/Resolving]
  - Oropharyngeal pain [Recovering/Resolving]
  - Dermatitis atopic [Unknown]
  - Eye irritation [Recovering/Resolving]
  - Injection site reaction [Recovering/Resolving]
  - Product dose omission in error [Unknown]
